FAERS Safety Report 5800491-5 (Version None)
Quarter: 2008Q3

REPORT INFORMATION
  Report Type: 
  Country: None (occurrence: None)
  Receive Date: 20080702
  Receipt Date: 20080702
  Transmission Date: 20090109
  Serious: No
  Sender: FDA-Public Use
  Company Number: None

PATIENT
  Sex: Female

DRUGS (1)
  1. FORTEO [Suspect]

REACTIONS (5)
  - ANOREXIA [None]
  - ASTHENIA [None]
  - DRUG INTERACTION [None]
  - FATIGUE [None]
  - VOMITING [None]
